FAERS Safety Report 20515108 (Version 1)
Quarter: 2022Q1

REPORT INFORMATION
  Report Type: Spontaneous
  Country: JP (occurrence: JP)
  Receive Date: 20220224
  Receipt Date: 20220224
  Transmission Date: 20220424
  Serious: Yes (Death, Other)
  Sender: FDA-Public Use
  Company Number: JP-ASTELLAS-2021US036710

PATIENT
  Age: 48 Year
  Sex: Female
  Weight: 54 kg

DRUGS (8)
  1. AMBISOME [Suspect]
     Active Substance: AMPHOTERICIN B
     Indication: Meningitis cryptococcal
     Route: 041
     Dates: start: 20210917
  2. AMBISOME [Suspect]
     Active Substance: AMPHOTERICIN B
     Route: 041
  3. AMBISOME [Suspect]
     Active Substance: AMPHOTERICIN B
     Route: 065
  4. VANCOMYCIN HYDROCHLORIDE [Suspect]
     Active Substance: VANCOMYCIN HYDROCHLORIDE
     Indication: Product used for unknown indication
     Dosage: UNK UNK, UNKNOWN FREQ.
     Route: 065
  5. FLUCYTOSINE [Concomitant]
     Active Substance: FLUCYTOSINE
     Indication: Product used for unknown indication
     Dosage: UNK UNK, UNKNOWN FREQ.
     Route: 065
  6. PHENYTOIN SODIUM [Concomitant]
     Active Substance: PHENYTOIN SODIUM
     Indication: Product used for unknown indication
     Dosage: UNK UNK, UNKNOWN FREQ.
     Route: 065
     Dates: start: 20210917
  7. OMEPRAZOLE SODIUM [Concomitant]
     Active Substance: OMEPRAZOLE SODIUM
     Indication: Product used for unknown indication
     Dosage: UNK UNK, UNKNOWN FREQ.
     Route: 065
     Dates: start: 20210917
  8. CEFTRIAXONE SODIUM [Concomitant]
     Active Substance: CEFTRIAXONE SODIUM
     Indication: Product used for unknown indication
     Dosage: UNK UNK, UNKNOWN FREQ.
     Route: 065
     Dates: start: 20210917

REACTIONS (4)
  - Hypokalaemia [Recovering/Resolving]
  - Hypomagnesaemia [Recovered/Resolved]
  - Renal impairment [Unknown]
  - Sepsis [Fatal]
